FAERS Safety Report 8995141 (Version 1)
Quarter: 2013Q1

REPORT INFORMATION
  Report Type: Spontaneous
  Country: CA (occurrence: CA)
  Receive Date: 20130102
  Receipt Date: 20130102
  Transmission Date: 20140127
  Serious: Yes (Other)
  Sender: FDA-Public Use
  Company Number: CA-B.I. PHARMACEUTICALS,INC./RIDGEFIELD-2012-CN-02667CN

PATIENT
  Age: 44 Year
  Sex: Male
  Weight: 109 kg

DRUGS (6)
  1. PRADAX [Suspect]
     Dosage: 300 MG
     Route: 065
  2. ATACAND [Concomitant]
  3. METOPROLOL [Concomitant]
  4. PARIET [Concomitant]
  5. SIMVASTATIN [Concomitant]
  6. TEVA-SPIROTON [Concomitant]

REACTIONS (6)
  - Arthralgia [Recovered/Resolved]
  - Condition aggravated [Recovered/Resolved]
  - Gout [Recovered/Resolved]
  - Joint swelling [Recovered/Resolved]
  - Oedema peripheral [Recovered/Resolved]
  - Pain in extremity [Recovered/Resolved]
